FAERS Safety Report 10486501 (Version 2)
Quarter: 2015Q2

REPORT INFORMATION
  Report Type: Spontaneous
  Country: AU (occurrence: None)
  Receive Date: 20140929
  Receipt Date: 20150504
  Transmission Date: 20150821
  Serious: Yes (Other)
  Sender: FDA-Public Use
  Company Number: AU-ACS-000025

PATIENT
  Age: 62 Year
  Sex: Female

DRUGS (2)
  1. METOPROLOL [Concomitant]
     Active Substance: METOPROLOL
  2. CEFEPIME [Suspect]
     Active Substance: CEFEPIME\CEFEPIME HYDROCHLORIDE
     Indication: OSTEOMYELITIS CHRONIC
     Dosage: (NOT OTHERWISE SPECIFIED)
     Route: 042

REACTIONS (1)
  - Tubulointerstitial nephritis [None]
